FAERS Safety Report 7293213-5 (Version None)
Quarter: 2011Q1

REPORT INFORMATION
  Report Type: 
  Country: None (occurrence: None)
  Receive Date: 20110215
  Receipt Date: 20110209
  Transmission Date: 20110831
  Serious: Yes (Other)
  Sender: FDA-Public Use
  Company Number: US-PFIZER INC-2010071400

PATIENT
  Sex: Female

DRUGS (3)
  1. XANAX [Suspect]
     Dosage: 1 DF, 1X/DAY
     Dates: start: 20100101
  2. XANAX [Suspect]
     Indication: ANXIETY
     Dosage: 1 DF, 3X/DAY
     Dates: end: 20100101
  3. PRISTIQ [Suspect]
     Dosage: 50 MG, 1X/DAY
     Route: 048
     Dates: start: 20100530

REACTIONS (4)
  - WEIGHT DECREASED [None]
  - IMPAIRED DRIVING ABILITY [None]
  - WITHDRAWAL SYNDROME [None]
  - FALL [None]
